FAERS Safety Report 11444748 (Version 1)
Quarter: 2015Q3

REPORT INFORMATION
  Report Type: Spontaneous
  Country: US (occurrence: None)
  Receive Date: 20150831
  Receipt Date: 20150831
  Transmission Date: 20151125
  Serious: Yes (Disabling)
  Sender: FDA-Public Use
  Company Number: None

PATIENT
  Age: 47 Year
  Sex: Female
  Weight: 61.24 kg

DRUGS (3)
  1. ADVIL [Concomitant]
     Active Substance: IBUPROFEN
  2. TYLENOL [Concomitant]
     Active Substance: ACETAMINOPHEN
  3. ESCITALOPRAM [Suspect]
     Active Substance: ESCITALOPRAM OXALATE
     Indication: DEPRESSION
     Route: 048
     Dates: start: 20150511, end: 20150830

REACTIONS (10)
  - Dizziness [None]
  - Abnormal dreams [None]
  - Vertigo [None]
  - Nausea [None]
  - Somnolence [None]
  - Feeling jittery [None]
  - Malaise [None]
  - Bruxism [None]
  - Coordination abnormal [None]
  - Headache [None]

NARRATIVE: CASE EVENT DATE: 20150830
